FAERS Safety Report 9698922 (Version 4)
Quarter: 2014Q1

REPORT INFORMATION
  Report Type: Report from Study
  Country: TH (occurrence: TH)
  Receive Date: 20131120
  Receipt Date: 20140224
  Transmission Date: 20141002
  Serious: Yes (Death, Hospitalization)
  Sender: FDA-Public Use
  Company Number: TH-ROCHE-1279673

PATIENT
  Age: 70 Year
  Sex: Female
  Weight: 28 kg

DRUGS (9)
  1. ERLOTINIB [Suspect]
     Indication: LUNG NEOPLASM MALIGNANT
     Dosage: FREQUENCY: DAILY, LAST DOSE PRIOR TO DEATH ON 25/DEC/2013
     Route: 048
     Dates: start: 20110521
  2. CLONAZEPAM [Suspect]
     Indication: PRODUCT USED FOR UNKNOWN INDICATION
     Route: 048
     Dates: start: 20130921, end: 20130921
  3. CARBOXYMETHYLCELLULOSE [Concomitant]
     Route: 065
     Dates: start: 20120308, end: 20130322
  4. FOLIC ACID [Concomitant]
     Route: 065
     Dates: start: 20120823, end: 20121225
  5. VITAMIN B COMPLEX [Concomitant]
     Dosage: 2 TABLET: DOSE
     Route: 065
     Dates: start: 20120823, end: 20131225
  6. FUCIDINE CREAM [Concomitant]
     Route: 065
     Dates: start: 20120910, end: 20120922
  7. FUCIDINE CREAM [Concomitant]
     Route: 065
     Dates: start: 20130725, end: 20130922
  8. FARLUTAL [Concomitant]
     Route: 065
     Dates: start: 20130530, end: 20130929
  9. TRAMADOL [Concomitant]
     Route: 065
     Dates: start: 20130725, end: 20131225

REACTIONS (2)
  - Dyspnoea [Fatal]
  - Somnolence [Recovered/Resolved with Sequelae]
